FAERS Safety Report 7170893-6 (Version None)
Quarter: 2010Q4

REPORT INFORMATION
  Report Type: 
  Country: None (occurrence: None)
  Receive Date: 20101217
  Receipt Date: 20101207
  Transmission Date: 20110411
  Serious: Yes (Hospitalization, Other)
  Sender: FDA-Public Use
  Company Number: US-ROCHE-458423

PATIENT
  Sex: Male
  Weight: 95.3 kg

DRUGS (3)
  1. ACCUTANE [Suspect]
     Route: 048
     Dates: start: 19980204, end: 19980305
  2. ACCUTANE [Suspect]
     Route: 048
     Dates: start: 19980306, end: 19980601
  3. DOCUSATE [Concomitant]
     Indication: CONSTIPATION
     Route: 065

REACTIONS (12)
  - CHEILITIS [None]
  - COLONIC FISTULA [None]
  - COLONIC STENOSIS [None]
  - CROHN'S DISEASE [None]
  - DRY SKIN [None]
  - EPISTAXIS [None]
  - HAEMORRHOIDS [None]
  - INFLAMMATORY BOWEL DISEASE [None]
  - MAJOR DEPRESSION [None]
  - OBSESSIVE-COMPULSIVE DISORDER [None]
  - PSOAS ABSCESS [None]
  - SUICIDAL IDEATION [None]
